FAERS Safety Report 8504308-X (Version None)
Quarter: 2012Q3

REPORT INFORMATION
  Report Type: 
  Country: None (occurrence: None)
  Receive Date: 20120711
  Receipt Date: 20120625
  Transmission Date: 20120928
  Serious: No
  Sender: FDA-Public Use
  Company Number: US-ASTRAZENECA-2012SE42848

PATIENT
  Age: 87 Year
  Sex: Male
  Weight: 63 kg

DRUGS (6)
  1. LOVASTATIN [Concomitant]
  2. AMBIEN [Concomitant]
     Indication: SLEEP DISORDER
  3. VITAMIN [Concomitant]
  4. NEXIUM [Suspect]
     Indication: GASTROOESOPHAGEAL REFLUX DISEASE
     Route: 048
     Dates: start: 20100101
  5. ASPIRIN [Concomitant]
     Indication: ANTICOAGULANT THERAPY
  6. LOVAZA [Concomitant]

REACTIONS (2)
  - ADVERSE EVENT [None]
  - BREAST CYST [None]
